FAERS Safety Report 6713167-7 (Version None)
Quarter: 2010Q2

REPORT INFORMATION
  Report Type: 
  Country: None (occurrence: None)
  Receive Date: 20100506
  Receipt Date: 20100423
  Transmission Date: 20101027
  Serious: Yes (Hospitalization)
  Sender: FDA-Public Use
  Company Number: PHHY2010JP26093

PATIENT
  Age: 68 Year
  Sex: Male

DRUGS (2)
  1. FLUVASTATIN [Suspect]
     Indication: HYPERLIPIDAEMIA
     Dosage: 20 MG DAILY
     Route: 048
     Dates: start: 20080708, end: 20100216
  2. FLUVASTATIN SODIUM [Suspect]
     Dosage: UNK
     Route: 048
     Dates: start: 20100217, end: 20100415

REACTIONS (3)
  - C-REACTIVE PROTEIN INCREASED [None]
  - COUGH [None]
  - PNEUMONITIS [None]
